FAERS Safety Report 16191516 (Version 2)
Quarter: 2019Q2

REPORT INFORMATION
  Report Type: Spontaneous
  Country: US (occurrence: US)
  Receive Date: 20190412
  Receipt Date: 20190530
  Transmission Date: 20190711
  Serious: No
  Sender: FDA-Public Use
  Company Number: US-ASTRAZENECA-2019SE45843

PATIENT

DRUGS (1)
  1. NEXIUM [Suspect]
     Active Substance: ESOMEPRAZOLE MAGNESIUM
     Dosage: UNKNOWN STRENGTH, FREQUENCY AND DOSE.
     Route: 048

REACTIONS (3)
  - Gastrooesophageal reflux disease [Unknown]
  - Tooth disorder [Unknown]
  - Barrett^s oesophagus [Unknown]
